FAERS Safety Report 8908981 (Version 3)
Quarter: 2018Q2

REPORT INFORMATION
  Report Type: Report from Study
  Country: JP (occurrence: JP)
  Receive Date: 20121114
  Receipt Date: 20180402
  Transmission Date: 20180711
  Serious: Yes (Hospitalization, Other)
  Sender: FDA-Public Use
  Company Number: PHHY2012JP104615

PATIENT
  Age: 46 Year
  Sex: Female
  Weight: 55 kg

DRUGS (9)
  1. URSO [Concomitant]
     Active Substance: URSODIOL
     Indication: HEPATITIS
     Dosage: 300 MG, QD
     Route: 048
     Dates: start: 20130611, end: 20140616
  2. METHYLPREDNISOL SODIUM SUCCINATE [Concomitant]
     Active Substance: METHYLPREDNISOLONE SODIUM SUCCINATE
     Indication: PRODUCT USED FOR UNKNOWN INDICATION
     Route: 065
  3. GASRICK D [Concomitant]
     Active Substance: FAMOTIDINE
     Indication: PROPHYLAXIS
     Dosage: 1 DF, QD
     Route: 048
     Dates: start: 20120807, end: 20120811
  4. SODIUM SUCCINATE [Concomitant]
     Active Substance: SODIUM SUCCINATE HEXAHYDRATE
     Indication: PRODUCT USED FOR UNKNOWN INDICATION
     Route: 065
  5. GILENYA [Suspect]
     Active Substance: FINGOLIMOD HYDROCHLORIDE
     Indication: MULTIPLE SCLEROSIS
     Dosage: 0.5 MG, QD
     Route: 048
     Dates: start: 20120928, end: 20121109
  6. GILENYA [Suspect]
     Active Substance: FINGOLIMOD HYDROCHLORIDE
     Dosage: 0.5 MG, QD
     Route: 048
     Dates: start: 20121115
  7. ONEALFA [Concomitant]
     Active Substance: ALFACALCIDOL
     Indication: PROPHYLAXIS
     Dosage: 1 DF, QD
     Route: 048
     Dates: start: 20120807, end: 20120811
  8. SOL-MELCORT [Concomitant]
     Active Substance: METHYLPREDNISOLONE SODIUM SUCCINATE
     Indication: MULTIPLE SCLEROSIS
     Dosage: 1 G, QD
     Route: 051
     Dates: start: 20120807, end: 20120811
  9. URSO [Concomitant]
     Active Substance: URSODIOL
     Dosage: 600 MG, QD
     Route: 048
     Dates: start: 20140617

REACTIONS (3)
  - Diverticulitis [Recovering/Resolving]
  - Hepatic enzyme increased [Recovered/Resolved]
  - Lymphocyte count decreased [Recovering/Resolving]

NARRATIVE: CASE EVENT DATE: 20121107
